FAERS Safety Report 18160752 (Version 2)
Quarter: 2020Q4

REPORT INFORMATION
  Report Type: Report from Study
  Country: None (occurrence: US)
  Receive Date: 20200818
  Receipt Date: 20201027
  Transmission Date: 20210113
  Serious: Yes (Other)
  Sender: FDA-Public Use
  Company Number: US-ABBVIE-20K-163-3237558-00

PATIENT
  Age: 20 Year
  Sex: Male

DRUGS (5)
  1. HUMIRA [Suspect]
     Active Substance: ADALIMUMAB
     Indication: CROHN^S DISEASE
     Dosage: DAY 1
     Route: 058
     Dates: start: 20200110, end: 20200110
  2. HUMIRA [Suspect]
     Active Substance: ADALIMUMAB
     Dosage: CITRATE FREE
     Route: 058
     Dates: start: 20200426
  3. HUMIRA [Suspect]
     Active Substance: ADALIMUMAB
     Route: 058
     Dates: start: 2020, end: 20200421
  4. HUMIRA [Suspect]
     Active Substance: ADALIMUMAB
     Dosage: DAY 15
     Route: 058
     Dates: start: 20200124, end: 20200124
  5. HUMIRA [Suspect]
     Active Substance: ADALIMUMAB
     Indication: CROHN^S DISEASE
     Route: 058
     Dates: start: 20200207, end: 2020

REACTIONS (53)
  - Peripheral vascular disorder [Not Recovered/Not Resolved]
  - Wrong technique in product usage process [Unknown]
  - Hyperhidrosis [Recovering/Resolving]
  - Insomnia [Recovering/Resolving]
  - Nasopharyngitis [Recovered/Resolved]
  - Rectal haemorrhage [Not Recovered/Not Resolved]
  - Sinus pain [Not Recovered/Not Resolved]
  - Injection site swelling [Not Recovered/Not Resolved]
  - Device issue [Unknown]
  - Pyrexia [Not Recovered/Not Resolved]
  - Loss of personal independence in daily activities [Not Recovered/Not Resolved]
  - Fatigue [Not Recovered/Not Resolved]
  - Abdominal pain upper [Not Recovered/Not Resolved]
  - Sinus disorder [Not Recovered/Not Resolved]
  - Visual impairment [Not Recovered/Not Resolved]
  - Peripheral swelling [Not Recovered/Not Resolved]
  - Palpitations [Not Recovered/Not Resolved]
  - Anxiety [Not Recovered/Not Resolved]
  - Injection site erythema [Not Recovered/Not Resolved]
  - Crohn^s disease [Unknown]
  - Headache [Not Recovered/Not Resolved]
  - Therapeutic response shortened [Unknown]
  - Feeling cold [Unknown]
  - Loss of personal independence in daily activities [Not Recovered/Not Resolved]
  - Skin discolouration [Not Recovered/Not Resolved]
  - Feeling abnormal [Not Recovered/Not Resolved]
  - Seasonal allergy [Recovering/Resolving]
  - Condition aggravated [Unknown]
  - Diarrhoea [Not Recovered/Not Resolved]
  - Abnormal faeces [Not Recovered/Not Resolved]
  - Paraesthesia [Recovering/Resolving]
  - Chills [Not Recovered/Not Resolved]
  - Muscle twitching [Recovering/Resolving]
  - Ear pain [Not Recovered/Not Resolved]
  - Arthralgia [Not Recovered/Not Resolved]
  - Ear discomfort [Not Recovered/Not Resolved]
  - Visual impairment [Not Recovered/Not Resolved]
  - Migraine [Recovering/Resolving]
  - Vision blurred [Not Recovered/Not Resolved]
  - Lupus-like syndrome [Not Recovered/Not Resolved]
  - Joint swelling [Not Recovered/Not Resolved]
  - Constipation [Recovered/Resolved]
  - Hypoaesthesia [Recovering/Resolving]
  - Feeling hot [Unknown]
  - Sinusitis [Not Recovered/Not Resolved]
  - Vomiting [Not Recovered/Not Resolved]
  - Chest pain [Recovering/Resolving]
  - Renal pain [Recovered/Resolved]
  - Rash macular [Not Recovered/Not Resolved]
  - Depressed mood [Not Recovered/Not Resolved]
  - Nausea [Not Recovered/Not Resolved]
  - Hypersensitivity [Recovering/Resolving]
  - Injection site pruritus [Not Recovered/Not Resolved]

NARRATIVE: CASE EVENT DATE: 2020
